FAERS Safety Report 10269723 (Version 1)
Quarter: 2014Q2

REPORT INFORMATION
  Report Type: Spontaneous
  Country: DE (occurrence: None)
  Receive Date: 20140625
  Receipt Date: 20140625
  Transmission Date: 20141212
  Serious: Yes (Hospitalization)
  Sender: FDA-Public Use
  Company Number: AUR-APL-2014-06369

PATIENT
  Age: 67 Year
  Sex: Female

DRUGS (3)
  1. RAMIPRIL AUROBINDO (RAMIPRIL) UNKNOWN, UNKNOWN [Suspect]
     Indication: PRODUCT USED FOR UNKNOWN INDICATION
     Dosage: 10 DF, ONCE A DAY, ORAL
     Route: 048
     Dates: end: 20140129
  2. TIMONIL (CARBAMAZEPINE) [Suspect]
     Indication: PRODUCT USED FOR UNKNOWN INDICATION
     Dosage: ONCE A DAY,
     Route: 048
     Dates: start: 20140129, end: 20140201
  3. DISTRANEURIN?/00027501/ (CLOMETHIAZOLE) [Concomitant]

REACTIONS (8)
  - Hyponatraemia [None]
  - Disorientation [None]
  - Agitation [None]
  - Abnormal behaviour [None]
  - Delirium [None]
  - Nausea [None]
  - Disturbance in attention [None]
  - Dizziness [None]
